FAERS Safety Report 9144714 (Version 2)
Quarter: 2013Q1

REPORT INFORMATION
  Report Type: Spontaneous
  Country: US (occurrence: US)
  Receive Date: 20130306
  Receipt Date: 20130311
  Transmission Date: 20140127
  Serious: Yes (Death)
  Sender: FDA-Public Use
  Company Number: US-GILEAD-2013-0071135

PATIENT
  Age: 41 Year
  Sex: Male

DRUGS (5)
  1. LETAIRIS [Suspect]
     Indication: PULMONARY HYPERTENSION
     Dosage: 5 MG, QD
     Dates: start: 20110913
  2. LETAIRIS [Suspect]
     Indication: EMBOLISM
  3. SILDENAFIL [Concomitant]
  4. LASILIX                            /00032601/ [Concomitant]
     Dosage: 20 MG, BID
  5. LASILIX                            /00032601/ [Concomitant]
     Dosage: 20 MG, QD

REACTIONS (1)
  - Death [Fatal]
